FAERS Safety Report 24728071 (Version 2)
Quarter: 2024Q4

REPORT INFORMATION
  Report Type: Spontaneous
  Country: GB (occurrence: GB)
  Receive Date: 20241212
  Receipt Date: 20241217
  Transmission Date: 20250114
  Serious: Yes (Other)
  Sender: TEVA
  Company Number: GB-WAYMADE WAYMADE B.V.-WAY20241101331

PATIENT
  Age: 18 Year
  Sex: Female

DRUGS (1)
  1. DOXYCYCLINE [Suspect]
     Active Substance: DOXYCYCLINE
     Indication: Product used for unknown indication
     Dosage: 100MG CAPSULES
     Route: 065

REACTIONS (6)
  - Photoonycholysis [Unknown]
  - Adverse drug reaction [Unknown]
  - Nail bed bleeding [Unknown]
  - Nail bed disorder [Unknown]
  - Nail discolouration [Unknown]
  - Nail discolouration [Unknown]
